FAERS Safety Report 14319579 (Version 1)
Quarter: 2017Q4

REPORT INFORMATION
  Report Type: Spontaneous
  Country: US (occurrence: US)
  Receive Date: 20171221
  Receipt Date: 20171221
  Transmission Date: 20180321
  Serious: No
  Sender: FDA-Public Use
  Company Number: None

PATIENT
  Sex: Male

DRUGS (1)
  1. HARVONI [Suspect]
     Active Substance: LEDIPASVIR\SOFOSBUVIR
     Indication: CHRONIC HEPATITIS C
     Dosage: 90/400MG DAILY BY MOUTH
     Route: 048
     Dates: start: 20170808

REACTIONS (4)
  - Dizziness postural [None]
  - Eye colour change [None]
  - Dizziness [None]
  - Vision blurred [None]
